FAERS Safety Report 9339093 (Version 1)
Quarter: 2013Q2

REPORT INFORMATION
  Report Type: Spontaneous
  Country: US (occurrence: US)
  Receive Date: 20130610
  Receipt Date: 20130610
  Transmission Date: 20140414
  Serious: No
  Sender: FDA-Public Use
  Company Number: US-ABBOTT-13P-163-1056013-00

PATIENT
  Age: 53 Year
  Sex: Male

DRUGS (3)
  1. K-TAB [Suspect]
     Indication: BLOOD POTASSIUM DECREASED
     Dates: start: 20130121
  2. NEXIUM [Concomitant]
     Indication: PRODUCT USED FOR UNKNOWN INDICATION
  3. LISINOPRIL [Concomitant]
     Indication: PRODUCT USED FOR UNKNOWN INDICATION

REACTIONS (1)
  - Medication residue present [Not Recovered/Not Resolved]
